FAERS Safety Report 8964095 (Version 2)
Quarter: 2013Q1

REPORT INFORMATION
  Report Type: Spontaneous
  Country: US (occurrence: US)
  Receive Date: 20121214
  Receipt Date: 20130116
  Transmission Date: 20140127
  Serious: No
  Sender: FDA-Public Use
  Company Number: US-009507513-1212USA003123

PATIENT
  Sex: Female

DRUGS (3)
  1. PEGINTRON [Suspect]
     Dosage: UNK
  2. VICTRELIS [Suspect]
     Route: 048
  3. RIBASPHERE [Suspect]

REACTIONS (2)
  - Confusional state [Unknown]
  - Product quality issue [Unknown]
